FAERS Safety Report 7265206-5 (Version None)
Quarter: 2011Q1

REPORT INFORMATION
  Report Type: 
  Country: None (occurrence: None)
  Receive Date: 20110131
  Receipt Date: 20110121
  Transmission Date: 20110831
  Serious: No
  Sender: FDA-Public Use
  Company Number: GR-ASTRAZENECA-2011SE04208

PATIENT
  Age: 45 Year
  Sex: Male
  Weight: 72 kg

DRUGS (2)
  1. CLOZAPINE [Concomitant]
     Route: 048
  2. SEROQUEL [Suspect]
     Route: 048
     Dates: start: 20101001, end: 20110101

REACTIONS (1)
  - LEUKOCYTOSIS [None]
